FAERS Safety Report 10914135 (Version 1)
Quarter: 2015Q1

REPORT INFORMATION
  Report Type: Report from Study
  Country: JP (occurrence: JP)
  Receive Date: 20150313
  Receipt Date: 20150313
  Transmission Date: 20150721
  Serious: Yes (Other)
  Sender: FDA-Public Use
  Company Number: JP-009507513-1503JPN006905

PATIENT
  Age: 52 Year
  Sex: Male
  Weight: 78 kg

DRUGS (12)
  1. OMEPRAZON [Concomitant]
     Active Substance: OMEPRAZOLE
     Indication: GASTRITIS
     Dosage: 10 MG, QD
     Route: 048
  2. RIBAVIRIN. [Suspect]
     Active Substance: RIBAVIRIN
     Dosage: 400 MG, QD
     Route: 048
     Dates: start: 20140704, end: 20141002
  3. CALBLOCK [Concomitant]
     Active Substance: AZELNIDIPINE
     Indication: HYPERTENSION
     Dosage: 8 MG, QD
     Route: 048
  4. PEGINTRON [Suspect]
     Active Substance: PEGINTERFERON ALFA-2B
     Indication: CHRONIC HEPATITIS C
     Dosage: 1.5 MICROGRAM PER KILOGRAM, QW
     Route: 058
     Dates: start: 20140418, end: 20140926
  5. RIBAVIRIN. [Suspect]
     Active Substance: RIBAVIRIN
     Dosage: 600 MG, QD
     Route: 048
     Dates: start: 20140517, end: 20140703
  6. SIMEPREVIR [Suspect]
     Active Substance: SIMEPREVIR
     Indication: CHRONIC HEPATITIS C
     Dosage: 100 MG, QD
     Route: 048
     Dates: start: 20140418, end: 20140710
  7. OLMETEC [Concomitant]
     Active Substance: OLMESARTAN MEDOXOMIL
     Indication: HYPERTENSION
     Dosage: 40 MG, QD
     Route: 048
  8. NEUROVITAN (CYANOCOBALAMIN (+) NIACINAMIDE (+) PYRIDOXINE HYDROCHLORID [Concomitant]
     Indication: GASTRITIS
     Dosage: 1 DF, QD
     Route: 048
  9. RIBAVIRIN. [Suspect]
     Active Substance: RIBAVIRIN
     Indication: CHRONIC HEPATITIS C
     Dosage: 800 MG, QD
     Route: 048
     Dates: start: 20140418, end: 20140516
  10. DEPAS [Concomitant]
     Active Substance: ETIZOLAM
     Indication: ANXIETY DISORDER
     Dosage: 3 MG, QD
     Route: 048
  11. MUCOSTA [Concomitant]
     Active Substance: REBAMIPIDE
     Indication: GASTRITIS
     Dosage: 300 MG, QD
     Route: 048
  12. TOUGHMAC E [Concomitant]
     Active Substance: AMYLASE\LIPASE\PROTEASE
     Indication: GASTRITIS
     Dosage: 3 DF, QD
     Route: 048

REACTIONS (3)
  - Blood bilirubin increased [Recovered/Resolved]
  - Platelet count decreased [Recovered/Resolved]
  - Anaemia [Recovered/Resolved]

NARRATIVE: CASE EVENT DATE: 20140425
